FAERS Safety Report 14420431 (Version 1)
Quarter: 2018Q1

REPORT INFORMATION
  Report Type: Spontaneous
  Country: US (occurrence: US)
  Receive Date: 20180122
  Receipt Date: 20180122
  Transmission Date: 20180509
  Serious: No
  Sender: FDA-Public Use
  Company Number: US-ROCHE-1944576

PATIENT
  Sex: Female

DRUGS (1)
  1. RITUXAN [Suspect]
     Active Substance: RITUXIMAB
     Indication: MULTIPLE SCLEROSIS
     Dosage: DAY 1 DAY 15 AND THEN EVERY  6 MONTHS ;ONGOING: UNKNOWN
     Route: 042
     Dates: start: 201702

REACTIONS (3)
  - Off label use [Unknown]
  - No adverse event [Unknown]
  - Pregnancy [Unknown]
